FAERS Safety Report 14503744 (Version 1)
Quarter: 2018Q1

REPORT INFORMATION
  Report Type: Spontaneous
  Country: US (occurrence: US)
  Receive Date: 20180207
  Receipt Date: 20180207
  Transmission Date: 20180509
  Serious: Yes (Hospitalization)
  Sender: FDA-Public Use
  Company Number: None

PATIENT
  Age: 9 Year
  Sex: Male

DRUGS (11)
  1. BOOST [Concomitant]
     Active Substance: DIETARY SUPPLEMENT
  2. ORKAMBI [Suspect]
     Active Substance: IVACAFTOR\LUMACAFTOR
     Indication: CYSTIC FIBROSIS
     Route: 048
     Dates: start: 20170322
  3. ALBUTEROL. [Concomitant]
     Active Substance: ALBUTEROL
  4. BETHKIS [Suspect]
     Active Substance: TOBRAMYCIN
     Indication: CYSTIC FIBROSIS
     Dosage: 1 AMPULE TWICE A DAY INHALED
     Route: 055
     Dates: start: 20160928
  5. PULMOZYME [Concomitant]
     Active Substance: DORNASE ALFA
  6. ZENPEP [Concomitant]
     Active Substance: PANCRELIPASE AMYLASE\PANCRELIPASE LIPASE\PANCRELIPASE PROTEASE
  7. AZITHROMYCIN ANHYDROUS. [Concomitant]
     Active Substance: AZITHROMYCIN ANHYDROUS
  8. PREVACID [Concomitant]
     Active Substance: LANSOPRAZOLE
  9. CAYSTON [Concomitant]
     Active Substance: AZTREONAM
  10. AQUADEKS [Concomitant]
     Active Substance: MINERALS\VITAMINS
  11. POLYETH GLYCOL [Concomitant]

REACTIONS (1)
  - Hospitalisation [None]

NARRATIVE: CASE EVENT DATE: 20180202
